FAERS Safety Report 24332898 (Version 2)
Quarter: 2024Q4

REPORT INFORMATION
  Report Type: Spontaneous
  Country: US (occurrence: US)
  Receive Date: 20240918
  Receipt Date: 20241010
  Transmission Date: 20250115
  Serious: Yes (Hospitalization)
  Sender: MYLAN
  Company Number: US-MYLANLABS-2024M1084217

PATIENT
  Sex: Male

DRUGS (9)
  1. GABAPENTIN [Suspect]
     Active Substance: GABAPENTIN
     Indication: Occipital neuralgia
     Dosage: UNK
     Route: 065
  2. PREGABALIN [Suspect]
     Active Substance: PREGABALIN
     Indication: Occipital neuralgia
     Dosage: UNK
     Route: 065
  3. PHENYTOIN [Suspect]
     Active Substance: PHENYTOIN
     Indication: Occipital neuralgia
     Dosage: UNK
     Route: 065
  4. CARBAMAZEPINE [Suspect]
     Active Substance: CARBAMAZEPINE
     Indication: Occipital neuralgia
     Dosage: UNK
     Route: 065
  5. PREDNISONE [Suspect]
     Active Substance: PREDNISONE
     Indication: Occipital neuralgia
     Dosage: UNK
     Route: 065
  6. NORTRIPTYLINE [Suspect]
     Active Substance: NORTRIPTYLINE
     Indication: Occipital neuralgia
     Dosage: UNK
     Route: 065
  7. DULOXETINE [Suspect]
     Active Substance: DULOXETINE
     Indication: Occipital neuralgia
     Dosage: UNK
     Route: 065
  8. UBROGEPANT [Suspect]
     Active Substance: UBROGEPANT
     Indication: Occipital neuralgia
     Dosage: UNK
     Route: 065
  9. ONABOTULINUMTOXINA [Suspect]
     Active Substance: ONABOTULINUMTOXINA
     Indication: Occipital neuralgia
     Dosage: UNK,RECEIVED MULTIPLE INJECTIONS
     Route: 065
     Dates: start: 202210

REACTIONS (2)
  - Drug ineffective [Unknown]
  - Off label use [Unknown]
